FAERS Safety Report 8558859-2 (Version None)
Quarter: 2012Q3

REPORT INFORMATION
  Report Type: 
  Country: None (occurrence: None)
  Receive Date: 20120801
  Receipt Date: 20120727
  Transmission Date: 20120928
  Serious: Yes (Other)
  Sender: FDA-Public Use
  Company Number: PHHY2012JP062495

PATIENT
  Age: 19 Year
  Sex: Male

DRUGS (2)
  1. CYCLOSPORINE [Suspect]
     Indication: PROPHYLAXIS AGAINST GRAFT VERSUS HOST DISEASE
  2. CYCLOSPORINE [Suspect]
     Indication: BONE MARROW TRANSPLANT

REACTIONS (11)
  - DISORIENTATION [None]
  - PAIN IN EXTREMITY [None]
  - HUMAN HERPESVIRUS 6 INFECTION [None]
  - PRURITUS [None]
  - MEMORY IMPAIRMENT [None]
  - TREMOR [None]
  - POST TRANSPLANT DISTAL LIMB SYNDROME [None]
  - TOXIC ENCEPHALOPATHY [None]
  - ENCEPHALITIS HERPES [None]
  - HYPERHIDROSIS [None]
  - PARAESTHESIA [None]
